FAERS Safety Report 9467904 (Version 1)
Quarter: 2013Q3

REPORT INFORMATION
  Report Type: Spontaneous
  Country: US (occurrence: None)
  Receive Date: 20130819
  Receipt Date: 20130819
  Transmission Date: 20140515
  Serious: No
  Sender: FDA-Public Use
  Company Number: None

PATIENT
  Sex: 0

DRUGS (1)
  1. VINCRISTINE [Suspect]

REACTIONS (5)
  - Medication error [None]
  - Ileus [None]
  - Constipation [None]
  - Small intestinal obstruction [None]
  - Small intestinal perforation [None]
